FAERS Safety Report 6815014-1 (Version None)
Quarter: 2010Q3

REPORT INFORMATION
  Report Type: 
  Country: None (occurrence: None)
  Receive Date: 20100702
  Receipt Date: 20100623
  Transmission Date: 20110219
  Serious: Yes (Hospitalization)
  Sender: FDA-Public Use
  Company Number: US-JNJFOC-20100608237

PATIENT
  Sex: Female
  Weight: 34.7 kg

DRUGS (15)
  1. INFLIXIMAB [Suspect]
     Indication: CROHN'S DISEASE
     Route: 042
  2. INFLIXIMAB [Suspect]
     Dosage: RECEIVED INFLIXIMAB PRIOR TO ENROLLING IN STUDY.
     Route: 042
  3. FOLIC ACID [Concomitant]
  4. HYDROCORTISONE [Concomitant]
  5. BACTROBAN [Concomitant]
  6. PROBIOTICS [Concomitant]
  7. CALAMINE [Concomitant]
  8. ZOFRAN [Concomitant]
  9. CEFADROXIL [Concomitant]
  10. ANTIBIOTIC [Concomitant]
     Indication: INFLAMMATORY BOWEL DISEASE
  11. 5-ASA [Concomitant]
     Route: 048
  12. METHOTREXATE [Concomitant]
  13. MERCAPTOPURINE [Concomitant]
  14. SLOW FE [Concomitant]
  15. TYLENOL W/ CODEINE [Concomitant]

REACTIONS (1)
  - CROHN'S DISEASE [None]
